FAERS Safety Report 20754623 (Version 1)
Quarter: 2022Q2

REPORT INFORMATION
  Report Type: Spontaneous
  Country: US (occurrence: US)
  Receive Date: 20220426
  Receipt Date: 20220426
  Transmission Date: 20220721
  Serious: No
  Sender: FDA-Public Use
  Company Number: US-ViiV Healthcare Limited-78478

PATIENT
  Age: 68 Year
  Sex: Male

DRUGS (2)
  1. RILPIVIRINE [Suspect]
     Active Substance: RILPIVIRINE
     Indication: Product used for unknown indication
     Dosage: 2.2 ML, RECEIVED 2.2. ML/3ML DOSE
     Route: 030
  2. CABOTEGRAVIR [Suspect]
     Active Substance: CABOTEGRAVIR
     Indication: Product used for unknown indication
     Dosage: 2.2 ML, RECEIVED 2.2. ML/3ML DOSE
     Route: 065

REACTIONS (2)
  - Incorrect dose administered [Unknown]
  - Product administration error [Unknown]

NARRATIVE: CASE EVENT DATE: 20220418
